FAERS Safety Report 18035047 (Version 1)
Quarter: 2020Q3

REPORT INFORMATION
  Report Type: Spontaneous
  Country: US (occurrence: US)
  Receive Date: 20200716
  Receipt Date: 20200716
  Transmission Date: 20201103
  Serious: No
  Sender: FDA-Public Use
  Company Number: None

PATIENT
  Age: 64 Year
  Sex: Male

DRUGS (1)
  1. ALBUTEROL HFA INHALER [Suspect]
     Active Substance: ALBUTEROL
     Route: 055
     Dates: start: 20200610

REACTIONS (3)
  - Incorrect dose administered [None]
  - Drug ineffective [None]
  - Drug delivery system malfunction [None]

NARRATIVE: CASE EVENT DATE: 20200715
